FAERS Safety Report 20776199 (Version 1)
Quarter: 2022Q2

REPORT INFORMATION
  Report Type: Spontaneous
  Country: JP (occurrence: JP)
  Receive Date: 20220502
  Receipt Date: 20220502
  Transmission Date: 20220721
  Serious: Yes (Hospitalization)
  Sender: FDA-Public Use
  Company Number: JP-NAPPMUNDI-GBR-2022-0097345

PATIENT
  Age: 89 Year
  Sex: Female

DRUGS (1)
  1. NORSPAN [Suspect]
     Active Substance: BUPRENORPHINE
     Indication: Product used for unknown indication
     Dosage: 2.5 MICROGRAM, Q1H (HALF-CUT PATCH OF 5 MCG/H) [STRENGTH 5 MG]
     Route: 062

REACTIONS (2)
  - Cerebral infarction [Unknown]
  - Wrong technique in product usage process [Unknown]
